FAERS Safety Report 6074895-2 (Version None)
Quarter: 2009Q1

REPORT INFORMATION
  Report Type: 
  Country: None (occurrence: None)
  Receive Date: 20090212
  Receipt Date: 20090206
  Transmission Date: 20090719
  Serious: Yes (Hospitalization)
  Sender: FDA-Public Use
  Company Number: CH-WYE-G03070409

PATIENT
  Age: 69 Year
  Sex: Female

DRUGS (13)
  1. EFFEXOR [Suspect]
     Indication: DEPRESSION
     Route: 048
     Dates: start: 20081224, end: 20090107
  2. TRAMADOL HCL [Interacting]
     Indication: PAIN
     Route: 048
     Dates: start: 20081212, end: 20090107
  3. NEXIUM [Interacting]
     Route: 048
     Dates: start: 20081201
  4. MIDAZOLAM HCL [Concomitant]
     Route: 048
  5. ASPIRIN [Concomitant]
     Route: 048
  6. METFORMIN HCL [Concomitant]
     Route: 048
  7. IRBESARTAN [Concomitant]
     Route: 048
  8. ADALAT [Concomitant]
     Route: 048
  9. TOREM [Concomitant]
     Route: 048
  10. SURMONTIL [Interacting]
     Indication: DEPRESSION
     Dosage: 25 MG EVERY 1 PRN
     Route: 048
     Dates: end: 20081201
  11. SURMONTIL [Interacting]
     Dosage: REDUCTION OVER 10 DAYS FROM 25 MG TO 5 MG AND STOP
     Dates: start: 20081201, end: 20090106
  12. SURMONTIL [Interacting]
     Route: 048
     Dates: start: 20090103, end: 20090103
  13. AMARYL [Concomitant]
     Route: 048

REACTIONS (2)
  - DRUG INTERACTION [None]
  - SEROTONIN SYNDROME [None]
